FAERS Safety Report 25992346 (Version 1)
Quarter: 2025Q4

REPORT INFORMATION
  Report Type: Spontaneous
  Country: US (occurrence: US)
  Receive Date: 20251103
  Receipt Date: 20251103
  Transmission Date: 20260117
  Serious: No
  Sender: SANOFI AVENTIS
  Company Number: US-SA-2025SA321561

PATIENT
  Age: 69 Year
  Sex: Male

DRUGS (9)
  1. DUPIXENT [Suspect]
     Active Substance: DUPILUMAB
     Indication: Dermatitis atopic
     Dosage: 300 MG
     Route: 058
     Dates: start: 20221227
  2. LOSARTAN [Concomitant]
     Active Substance: LOSARTAN
  3. LEXAPRO [Concomitant]
     Active Substance: ESCITALOPRAM OXALATE
  4. ESCITALOPRAM [Concomitant]
     Active Substance: ESCITALOPRAM OXALATE
  5. SIMVASTATIN [Concomitant]
     Active Substance: SIMVASTATIN
  6. ATORVASTATIN [Concomitant]
     Active Substance: ATORVASTATIN
  7. MAGNESIUM [Concomitant]
     Active Substance: MAGNESIUM
  8. VITAMIN D3 [Concomitant]
     Active Substance: CHOLECALCIFEROL
  9. FAMCICLOVIR [Concomitant]
     Active Substance: FAMCICLOVIR

REACTIONS (1)
  - Oral herpes [Unknown]

NARRATIVE: CASE EVENT DATE: 20251028
